FAERS Safety Report 9296698 (Version 1)
Quarter: 2013Q2

REPORT INFORMATION
  Report Type: Spontaneous
  Country: US (occurrence: US)
  Receive Date: 20130517
  Receipt Date: 20130517
  Transmission Date: 20140414
  Serious: Yes (Life-Threatening, Hospitalization)
  Sender: FDA-Public Use
  Company Number: US-B.I. PHARMACEUTICALS,INC./RIDGEFIELD-2013-BI-13594BP

PATIENT
  Age: 61 Year
  Sex: Male

DRUGS (7)
  1. PRADAXA [Suspect]
  2. HYDROCHLOROTHIAZIDE [Concomitant]
  3. LISINOPRIL [Concomitant]
  4. NORVASC [Concomitant]
  5. DIGOXIN [Concomitant]
  6. LASIX [Concomitant]
  7. CIALIS [Concomitant]

REACTIONS (8)
  - Supraventricular tachycardia [Unknown]
  - Injury [Unknown]
  - Rib fracture [Unknown]
  - Spinal column injury [Unknown]
  - Lumbar vertebral fracture [Unknown]
  - Scapula fracture [Unknown]
  - Haemothorax [Unknown]
  - Hypotension [Unknown]
